FAERS Safety Report 5148058-9 (Version None)
Quarter: 2006Q4

REPORT INFORMATION
  Report Type: 
  Country: None (occurrence: None)
  Receive Date: 20060918
  Receipt Date: 20051221
  Transmission Date: 20070319
  Serious: Yes (Other)
  Sender: FDA-Public Use
  Company Number: US-JNJFOC-20050802852

PATIENT
  Age: 12 Year
  Sex: Female
  Weight: 33 kg

DRUGS (2)
  1. TOPAMAX [Suspect]
     Indication: EPILEPSY
     Dosage: SEE IMAGE
     Route: 048
     Dates: start: 19970101
  2. DEPAKOTE [Concomitant]

REACTIONS (3)
  - HEPATIC ENZYME INCREASED [None]
  - METABOLIC ACIDOSIS [None]
  - PANCREATITIS [None]
